FAERS Safety Report 4360629-6 (Version None)
Quarter: 2004Q2

REPORT INFORMATION
  Report Type: 
  Country: None (occurrence: None)
  Receive Date: 20040519
  Receipt Date: 20040519
  Transmission Date: 20050107
  Serious: Yes (Hospitalization)
  Sender: FDA-Public Use
  Company Number: None

PATIENT
  Age: 33 Year
  Sex: Female
  Weight: 63.5 kg

DRUGS (4)
  1. TEQUIN [Suspect]
     Indication: URINARY TRACT INFECTION
     Dosage: 400 MG X 1 INTRAVENOUS
     Route: 042
     Dates: start: 20040226, end: 20040226
  2. WELLBUTRIN SR [Suspect]
     Indication: DEPRESSION
     Dosage: 150 MG DAILY ORAL
     Route: 048
     Dates: start: 20040226, end: 20040226
  3. PRILOSEC [Concomitant]
  4. MOTRIN [Concomitant]

REACTIONS (2)
  - GRAND MAL CONVULSION [None]
  - RHABDOMYOLYSIS [None]
